FAERS Safety Report 5583291-3 (Version None)
Quarter: 2008Q1

REPORT INFORMATION
  Report Type: 
  Country: None (occurrence: None)
  Receive Date: 20080107
  Receipt Date: 20071231
  Transmission Date: 20080703
  Serious: Yes (Other)
  Sender: FDA-Public Use
  Company Number: US-PFIZER INC-2005042431

PATIENT
  Sex: Male

DRUGS (1)
  1. VIAGRA [Suspect]
     Dates: start: 19980101, end: 20040101

REACTIONS (12)
  - BLINDNESS TRANSIENT [None]
  - CHRONIC SINUSITIS [None]
  - COUGH [None]
  - DIABETES MELLITUS [None]
  - DRUG INEFFECTIVE [None]
  - HEADACHE [None]
  - HYPERLIPIDAEMIA [None]
  - HYPERTENSION [None]
  - NASAL CONGESTION [None]
  - NASAL SEPTUM DEVIATION [None]
  - PYREXIA [None]
  - TEMPOROMANDIBULAR JOINT SYNDROME [None]
